APPROVED DRUG PRODUCT: CALCIUM GLUCONATE
Active Ingredient: CALCIUM GLUCONATE
Strength: 5GM/50ML (100MG/ML)
Dosage Form/Route: SOLUTION;INTRAVENOUS
Application: N208418 | Product #002 | TE Code: AP
Applicant: FRESENIUS KABI USA LLC
Approved: Jun 15, 2017 | RLD: Yes | RS: Yes | Type: RX